FAERS Safety Report 4472046-9 (Version None)
Quarter: 2004Q4

REPORT INFORMATION
  Report Type: 
  Country: None (occurrence: None)
  Receive Date: 20041012
  Receipt Date: 20041007
  Transmission Date: 20050328
  Serious: Yes (Death, Other)
  Sender: FDA-Public Use
  Company Number: 04-10-1400

PATIENT
  Age: 49 Year
  Sex: Female

DRUGS (1)
  1. CLOZAPINE [Suspect]
     Indication: SCHIZOAFFECTIVE DISORDER
     Dosage: 200-650 MG QD ORAL
     Route: 048
     Dates: start: 19980101, end: 20040901

REACTIONS (2)
  - CARDIAC ARREST [None]
  - PANCREATIC NEOPLASM [None]
